FAERS Safety Report 10563916 (Version 1)
Quarter: 2014Q4

REPORT INFORMATION
  Report Type: Spontaneous
  Country: TR (occurrence: TR)
  Receive Date: 20141104
  Receipt Date: 20141104
  Transmission Date: 20150529
  Serious: Yes (Other)
  Sender: FDA-Public Use
  Company Number: PHHY2014TR140936

PATIENT
  Sex: Male

DRUGS (3)
  1. IMATINIB [Concomitant]
     Active Substance: IMATINIB
     Indication: CHRONIC MYELOID LEUKAEMIA
     Dates: start: 2010
  2. TASIGNA [Suspect]
     Active Substance: NILOTINIB
     Indication: CHRONIC MYELOID LEUKAEMIA
     Route: 065
     Dates: start: 2008
  3. DASATINIB [Concomitant]
     Active Substance: DASATINIB
     Indication: CHRONIC MYELOID LEUKAEMIA
     Route: 065
     Dates: start: 200911

REACTIONS (2)
  - Cytopenia [Unknown]
  - Leukaemia recurrent [Unknown]
